FAERS Safety Report 9780332 (Version 2)
Quarter: 2014Q1

REPORT INFORMATION
  Report Type: Report from Study
  Country: JP (occurrence: JP)
  Receive Date: 20131224
  Receipt Date: 20140318
  Transmission Date: 20141002
  Serious: Yes (Hospitalization)
  Sender: FDA-Public Use
  Company Number: JP-ROCHE-1321900

PATIENT
  Age: 59 Year
  Sex: Female
  Weight: 75 kg

DRUGS (4)
  1. METHOXY POLYETHYLENE GLYCOL-EPOETIN BETA [Suspect]
     Indication: NEPHROGENIC ANAEMIA
     Route: 042
     Dates: start: 20120405
  2. FESIN (JAPAN) [Concomitant]
     Route: 042
     Dates: end: 20120802
  3. IRBETAN [Concomitant]
     Route: 048
     Dates: end: 20131031
  4. ARTIST [Concomitant]
     Route: 048

REACTIONS (1)
  - Renal cancer metastatic [Recovering/Resolving]
